FAERS Safety Report 4523131-4 (Version None)
Quarter: 2004Q4

REPORT INFORMATION
  Report Type: 
  Country: None (occurrence: None)
  Receive Date: 20041207
  Receipt Date: 20041207
  Transmission Date: 20050328
  Serious: Yes (Disabling)
  Sender: FDA-Public Use
  Company Number: None

PATIENT
  Age: 62 Year
  Sex: Male
  Weight: 77.1115 kg

DRUGS (4)
  1. LIPITOR [Suspect]
     Indication: BLOOD CHOLESTEROL INCREASED
     Dosage: 1 TAB DAILY - ORAL
     Route: 048
     Dates: start: 20030101, end: 20040101
  2. WELLBUTRIN [Suspect]
  3. ASPIRIN THERAPY [Concomitant]
  4. WELCHOL [Concomitant]

REACTIONS (3)
  - AMNESIA [None]
  - CATARACT [None]
  - IMPAIRED WORK ABILITY [None]
